FAERS Safety Report 5870841-2 (Version None)
Quarter: 2008Q3

REPORT INFORMATION
  Report Type: 
  Country: None (occurrence: None)
  Receive Date: 20080829
  Receipt Date: 20080815
  Transmission Date: 20090109
  Serious: Yes (Hospitalization)
  Sender: FDA-Public Use
  Company Number: FDB-2008-040

PATIENT
  Age: 66 Year
  Sex: Female

DRUGS (1)
  1. CIS-SULFUR COLLOID, KIT FOR THE PREPARATION OF TC99M [Suspect]
     Indication: SCAN
     Dosage: 10MCI, IV INJECTION
     Route: 042
     Dates: start: 20080814

REACTIONS (3)
  - DYSKINESIA [None]
  - SPEECH DISORDER [None]
  - SWOLLEN TONGUE [None]
